FAERS Safety Report 21079857 (Version 1)
Quarter: 2022Q3

REPORT INFORMATION
  Report Type: Report from Study
  Country: PE (occurrence: PE)
  Receive Date: 20220714
  Receipt Date: 20220714
  Transmission Date: 20221027
  Serious: Yes (Other)
  Sender: FDA-Public Use
  Company Number: PE-JNJFOC-20220713840

PATIENT
  Age: 20 Year
  Sex: Female

DRUGS (2)
  1. SPRAVATO [Suspect]
     Active Substance: ESKETAMINE
     Indication: Depression
     Dosage: INDUCTION PHASE (WEEK 1 TO 4): 2 TIMES PER WEEK
     Dates: start: 20220611
  2. SPRAVATO [Suspect]
     Active Substance: ESKETAMINE
     Dates: start: 20220704

REACTIONS (2)
  - Depression [Recovering/Resolving]
  - Headache [Recovering/Resolving]

NARRATIVE: CASE EVENT DATE: 20220629
